FAERS Safety Report 4292093-X (Version None)
Quarter: 2004Q1

REPORT INFORMATION
  Report Type: 
  Country: None (occurrence: None)
  Receive Date: 20040211
  Receipt Date: 20030415
  Transmission Date: 20041129
  Serious: Yes (Hospitalization, Other)
  Sender: FDA-Public Use
  Company Number: WAES 0304USA01476

PATIENT
  Age: 57 Year
  Sex: Male
  Weight: 85 kg

DRUGS (16)
  1. TYLENOL (CAPLET) [Concomitant]
  2. AUGMENTIN '125' [Concomitant]
  3. ANTIMICROBIAL (UNSPECIFIED) [Concomitant]
  4. CELEBREX [Concomitant]
  5. CLAVULANATE POTASSIUM [Concomitant]
  6. COLACE [Concomitant]
  7. NEURONTIN [Concomitant]
  8. GUAIFENESIN [Concomitant]
  9. HYDROCODONE BITARTRATE [Concomitant]
  10. ARAVA [Suspect]
     Indication: RHEUMATOID ARTHRITIS
     Dates: start: 20000823, end: 20000825
  11. ARAVA [Suspect]
     Dates: start: 20000826, end: 20001028
  12. METHOTREXATE [Concomitant]
  13. PREDNISONE [Concomitant]
  14. RANITIDINE [Concomitant]
  15. VIOXX [Suspect]
     Indication: RHEUMATOID ARTHRITIS
     Route: 048
  16. SULFASALAZINE [Concomitant]

REACTIONS (22)
  - ARTHRALGIA [None]
  - BLOOD PRESSURE INCREASED [None]
  - CONTUSION [None]
  - FALL [None]
  - FATIGUE [None]
  - HAEMANGIOMA [None]
  - HEPATIC CYST [None]
  - HEPATITIS [None]
  - HEPATOCELLULAR DAMAGE [None]
  - HEPATOTOXICITY [None]
  - HYPERTENSION [None]
  - LYMPHOCYTE COUNT DECREASED [None]
  - MONOCYTE COUNT INCREASED [None]
  - NEUTROPHIL COUNT DECREASED [None]
  - PAIN [None]
  - PLATELET COUNT INCREASED [None]
  - RED BLOOD CELL COUNT DECREASED [None]
  - RENAL CYST [None]
  - SERUM FERRITIN INCREASED [None]
  - SKELETAL INJURY [None]
  - THROMBOCYTHAEMIA [None]
  - WHITE BLOOD CELL COUNT INCREASED [None]
